FAERS Safety Report 5231158-2 (Version None)
Quarter: 2007Q1

REPORT INFORMATION
  Report Type: 
  Country: None (occurrence: None)
  Receive Date: 20070206
  Receipt Date: 20070130
  Transmission Date: 20070707
  Serious: Yes (Other)
  Sender: FDA-Public Use
  Company Number: CH-ROCHE-473888

PATIENT
  Age: 36 Year
  Sex: Male

DRUGS (6)
  1. BONVIVA [Suspect]
     Indication: OSTEOPOROSIS
     Route: 042
     Dates: start: 20061019, end: 20070115
  2. LUMINAL [Concomitant]
     Route: 048
  3. DEPAKENE [Concomitant]
     Route: 048
  4. PHENYTOIN [Concomitant]
     Route: 048
  5. TEGRETOL [Concomitant]
     Route: 048
  6. CALCIUM [Concomitant]
     Indication: OSTEOPOROSIS
     Route: 048
     Dates: start: 20061015

REACTIONS (1)
  - EPILEPSY [None]
